FAERS Safety Report 14140030 (Version 2)
Quarter: 2017Q4

REPORT INFORMATION
  Report Type: Spontaneous
  Country: JP (occurrence: JP)
  Receive Date: 20171030
  Receipt Date: 20171225
  Transmission Date: 20180321
  Serious: Yes (Hospitalization)
  Sender: FDA-Public Use
  Company Number: JP-ROCHE-2015111

PATIENT
  Age: 72 Year
  Sex: Female
  Weight: 52 kg

DRUGS (9)
  1. ACTEMRA [Suspect]
     Active Substance: TOCILIZUMAB
     Indication: RHEUMATOID ARTHRITIS
     Dosage: DOSAGE IS UNCERTAIN.
     Route: 041
     Dates: start: 200807, end: 20140114
  2. ACTEMRA [Suspect]
     Active Substance: TOCILIZUMAB
     Indication: RHEUMATOID ARTHRITIS
     Route: 041
     Dates: start: 201403, end: 2014
  3. ACTEMRA [Suspect]
     Active Substance: TOCILIZUMAB
     Indication: RHEUMATOID ARTHRITIS
     Route: 041
     Dates: start: 20171211
  4. ACTEMRA [Suspect]
     Active Substance: TOCILIZUMAB
     Indication: RHEUMATOID ARTHRITIS
     Dosage: INTERVAL FOR 4-5 WEEKS
     Route: 041
     Dates: start: 20140624, end: 20170901
  5. METFORMIN HYDROCHLORIDE. [Concomitant]
     Active Substance: METFORMIN HYDROCHLORIDE
     Dosage: DOSAGE IS UNCERTAIN.
     Route: 065
  6. GLACTIV [Concomitant]
     Active Substance: SITAGLIPTIN
     Dosage: DOSAGE IS UNCERTAIN.
     Route: 065
  7. EDIROL [Concomitant]
     Active Substance: ELDECALCITOL
     Route: 048
  8. RHEUMATREX [Concomitant]
     Active Substance: METHOTREXATE SODIUM
     Route: 048
     Dates: start: 20060823
  9. LOSARTAN POTASSIUM. [Concomitant]
     Active Substance: LOSARTAN POTASSIUM
     Dosage: DOSAGE IS UNCERTAIN.
     Route: 065

REACTIONS (2)
  - Lung neoplasm malignant [Not Recovered/Not Resolved]
  - Cell marker increased [Unknown]

NARRATIVE: CASE EVENT DATE: 201312
